FAERS Safety Report 22143375 (Version 2)
Quarter: 2023Q1

REPORT INFORMATION
  Report Type: Spontaneous
  Country: US (occurrence: US)
  Receive Date: 20230327
  Receipt Date: 20230328
  Transmission Date: 20230417
  Serious: No
  Sender: FDA-Public Use
  Company Number: US-ABBVIE-4706109

PATIENT
  Sex: Male
  Weight: 92.079 kg

DRUGS (6)
  1. IMBRUVICA [Suspect]
     Active Substance: IBRUTINIB
     Indication: Chronic lymphocytic leukaemia
     Route: 048
     Dates: start: 20200219, end: 20200708
  2. BENAZEPRIL [Concomitant]
     Active Substance: BENAZEPRIL HYDROCHLORIDE
     Indication: Product used for unknown indication
     Dosage: FORM STRENGTH: 10 MILLIGRAM
     Route: 048
  3. VENCLEXTA [Suspect]
     Active Substance: VENETOCLAX
     Indication: Chronic lymphocytic leukaemia
     Dosage: FORM STRENGTH: 100 MILLIGRAM?10 MG TO 50 MG - 100 MG TABLETS IN DOSE PACK
     Route: 048
     Dates: start: 202201
  4. IVIG PRN [Concomitant]
     Indication: Product used for unknown indication
     Dosage: LAST ADMIN DATE WAS 2019
     Dates: start: 20190508
  5. IVIG PRN [Concomitant]
     Indication: Product used for unknown indication
     Dates: start: 20191104
  6. IVIG PRN [Concomitant]
     Indication: Product used for unknown indication
     Dates: start: 20200721

REACTIONS (3)
  - Cardiac murmur [Unknown]
  - Asthenia [Unknown]
  - Arthralgia [Unknown]
